FAERS Safety Report 5570585-0 (Version None)
Quarter: 2007Q4

REPORT INFORMATION
  Report Type: 
  Country: None (occurrence: None)
  Receive Date: 20071221
  Receipt Date: 20071219
  Transmission Date: 20080405
  Serious: Yes (Hospitalization)
  Sender: FDA-Public Use
  Company Number: FR-BRISTOL-MYERS SQUIBB COMPANY-14020689

PATIENT
  Age: 76 Year
  Sex: Female

DRUGS (6)
  1. HYDREA [Suspect]
     Dosage: FREQUENCY = 3/D + 4/D ON WEEKEND
  2. INEXIUM [Suspect]
  3. MIRTAZAPINE [Concomitant]
  4. STILNOX [Concomitant]
  5. SULFARLEM [Concomitant]
  6. LEVOTHYROX [Concomitant]

REACTIONS (3)
  - ANAEMIA MACROCYTIC [None]
  - HEPATITIS [None]
  - LOSS OF CONSCIOUSNESS [None]
